FAERS Safety Report 5168107-1 (Version None)
Quarter: 2006Q4

REPORT INFORMATION
  Report Type: 
  Country: None (occurrence: None)
  Receive Date: 20061208
  Receipt Date: 20061127
  Transmission Date: 20070319
  Serious: Yes (Other)
  Sender: FDA-Public Use
  Company Number: SEWYE660127NOV06

PATIENT
  Sex: Male

DRUGS (3)
  1. ENBREL [Suspect]
     Indication: ARTHRITIS
     Dates: start: 20060101
  2. METHOTREXATE [Concomitant]
     Indication: ARTHRITIS
     Dates: start: 20051101
  3. PREDNISOLONE [Concomitant]
     Indication: ARTHRITIS
     Dosage: 2.5-5 MG DAILY
     Dates: start: 20000101

REACTIONS (1)
  - BASAL CELL CARCINOMA [None]
